FAERS Safety Report 4451271-7 (Version None)
Quarter: 2004Q3

REPORT INFORMATION
  Report Type: 
  Country: None (occurrence: None)
  Receive Date: 20040915
  Receipt Date: 20040915
  Transmission Date: 20050211
  Serious: Yes (Other)
  Sender: FDA-Public Use
  Company Number: None

PATIENT
  Sex: Female
  Weight: 113.3993 kg

DRUGS (2)
  1. CHLORAPREP CHLORHEXIDINE 2% MED-FLEX [Suspect]
     Dosage: AS DIRECTE CUTANEOUS
     Route: 003
     Dates: start: 20040825, end: 20040901
  2. ROCEPHIN [Concomitant]

REACTIONS (4)
  - APPLICATION SITE BURNING [None]
  - APPLICATION SITE ERYTHEMA [None]
  - APPLICATION SITE EXCORIATION [None]
  - APPLICATION SITE PAIN [None]
